FAERS Safety Report 6949627-3 (Version None)
Quarter: 2010Q3

REPORT INFORMATION
  Report Type: 
  Country: None (occurrence: None)
  Receive Date: 20100828
  Receipt Date: 20100107
  Transmission Date: 20110219
  Serious: No
  Sender: FDA-Public Use
  Company Number: US-ABBOTT-10P-163-0618045-00

PATIENT
  Sex: Male
  Weight: 86.26 kg

DRUGS (7)
  1. NIASPAN [Suspect]
     Indication: ARTERIOSCLEROSIS CORONARY ARTERY
     Dosage: NIGHTLY
     Dates: start: 20091201, end: 20100105
  2. NIASPAN [Suspect]
     Dosage: 1 IN MORNING AND 1 NIGHTLY
     Dates: start: 20100105
  3. ASPIRIN [Concomitant]
     Indication: PRODUCT USED FOR UNKNOWN INDICATION
     Route: 048
  4. PLAVIX [Concomitant]
     Indication: PRODUCT USED FOR UNKNOWN INDICATION
     Route: 048
  5. CARVEDILOL [Concomitant]
     Indication: PRODUCT USED FOR UNKNOWN INDICATION
     Route: 048
  6. ENALAPRIL [Concomitant]
     Indication: PRODUCT USED FOR UNKNOWN INDICATION
     Route: 048
  7. PRAVASTATIN [Concomitant]
     Indication: PRODUCT USED FOR UNKNOWN INDICATION
     Route: 048

REACTIONS (1)
  - FLUSHING [None]
